FAERS Safety Report 9225738 (Version 1)
Quarter: 2013Q1

REPORT INFORMATION
  Report Type: Spontaneous
  Country: US (occurrence: None)
  Receive Date: 20120914
  Receipt Date: 20120914
  Transmission Date: 20140127
  Serious: Yes (Other)
  Sender: FDA-Public Use
  Company Number: JPI-P-017410

PATIENT
  Age: 51 Year
  Sex: Female
  Weight: 63.5 kg

DRUGS (3)
  1. XYREM (500 MILLIGRAM/MILLILITERS, SOLUTION) (SODIUM OXYBATE) [Suspect]
     Indication: CATAPLEXY
     Route: 048
     Dates: start: 20110923, end: 20110925
  2. XYREM (500 MILLIGRAM/MILLILITERS, SOLUTION) (SODIUM OXYBATE) [Suspect]
     Indication: FIBROMYALGIA
     Route: 048
     Dates: start: 20110923, end: 20110925
  3. UNSPECIFIED MEDICATIONS [Concomitant]

REACTIONS (10)
  - Blood pressure increased [None]
  - Fibromyalgia [None]
  - Condition aggravated [None]
  - Anger [None]
  - Tension [None]
  - Dizziness [None]
  - Disorientation [None]
  - Memory impairment [None]
  - Migraine [None]
  - Feeling abnormal [None]
